FAERS Safety Report 17434525 (Version 1)
Quarter: 2020Q1

REPORT INFORMATION
  Report Type: Spontaneous
  Country: US (occurrence: US)
  Receive Date: 20200204
  Receipt Date: 20200204
  Transmission Date: 20200409
  Serious: No
  Sender: FDA-Public Use
  Company Number: None

PATIENT
  Age: 68 Year
  Sex: Male

DRUGS (1)
  1. ERLOTINIB 150MG TAB [Suspect]
     Active Substance: ERLOTINIB
     Route: 048
     Dates: start: 20200122

REACTIONS (3)
  - Rhinorrhoea [None]
  - Nasal mucosal disorder [None]
  - Epistaxis [None]

NARRATIVE: CASE EVENT DATE: 20200204
